FAERS Safety Report 5615916-8 (Version None)
Quarter: 2008Q1

REPORT INFORMATION
  Report Type: 
  Country: None (occurrence: None)
  Receive Date: 20080201
  Receipt Date: 20080117
  Transmission Date: 20080703
  Serious: Yes (Hospitalization)
  Sender: FDA-Public Use
  Company Number: 2008S1001354

PATIENT
  Age: 21 Year
  Sex: Male

DRUGS (2)
  1. CYSTAGON [Suspect]
     Indication: CYSTINOSIS
     Dosage: DAILY; ORAL
     Route: 048
     Dates: start: 19980101
  2. TAMOXIFEN [Concomitant]

REACTIONS (6)
  - BLOOD PARATHYROID HORMONE INCREASED [None]
  - HAEMODIALYSIS [None]
  - HAEMOGLOBIN DECREASED [None]
  - LABORATORY TEST ABNORMAL [None]
  - PERITONEAL DIALYSIS [None]
  - PERITONEAL DISORDER [None]
